FAERS Safety Report 4652056-9 (Version None)
Quarter: 2005Q2

REPORT INFORMATION
  Report Type: 
  Country: None (occurrence: None)
  Receive Date: 20050502
  Receipt Date: 20050502
  Transmission Date: 20051028
  Serious: Yes (Hospitalization)
  Sender: FDA-Public Use
  Company Number: None

PATIENT
  Age: 60 Year
  Sex: Male
  Weight: 92 kg

DRUGS (3)
  1. LAMICTAL     UNKNOWN [Suspect]
     Indication: BIPOLAR DISORDER
     Dosage: ORAL
     Route: 048
     Dates: start: 20050201, end: 20050425
  2. RESTORIL [Concomitant]
  3. TRICOR [Concomitant]

REACTIONS (7)
  - DIARRHOEA [None]
  - HEADACHE [None]
  - IRIDOCYCLITIS [None]
  - MYALGIA [None]
  - PYREXIA [None]
  - VISION BLURRED [None]
  - VISUAL ACUITY REDUCED [None]
